FAERS Safety Report 6817892-9 (Version None)
Quarter: 2010Q3

REPORT INFORMATION
  Report Type: 
  Country: None (occurrence: None)
  Receive Date: 20100706
  Receipt Date: 20100701
  Transmission Date: 20110219
  Serious: Yes (Death)
  Sender: FDA-Public Use
  Company Number: US-ASTRAZENECA-2010SE30722

PATIENT
  Age: 65 Year
  Sex: Male

DRUGS (3)
  1. SEROQUEL [Suspect]
     Indication: SLEEP DISORDER
     Route: 048
     Dates: start: 20100507
  2. PROZAC [Concomitant]
  3. XANAX [Concomitant]

REACTIONS (2)
  - COMPLETED SUICIDE [None]
  - HYPERGLYCAEMIA [None]
